FAERS Safety Report 9832909 (Version 1)
Quarter: 2014Q1

REPORT INFORMATION
  Report Type: Report from Study
  Country: GB (occurrence: GB)
  Receive Date: 20140121
  Receipt Date: 20140121
  Transmission Date: 20141002
  Serious: Yes (Death)
  Sender: FDA-Public Use
  Company Number: GB-ABBVIE-14P-167-1191231-00

PATIENT
  Sex: Male
  Weight: 79.3 kg

DRUGS (1)
  1. HUMIRA [Suspect]
     Indication: PSORIASIS
     Route: 058
     Dates: start: 20090918

REACTIONS (5)
  - Small intestine adenocarcinoma [Fatal]
  - Cerebrovascular accident [Fatal]
  - Myocardial ischaemia [Fatal]
  - Hypertension [Fatal]
  - Renal failure chronic [Fatal]
